FAERS Safety Report 4613828-X (Version None)
Quarter: 2005Q1

REPORT INFORMATION
  Report Type: 
  Country: None (occurrence: None)
  Receive Date: 20050315
  Receipt Date: 20041028
  Transmission Date: 20050727
  Serious: Yes (Hospitalization)
  Sender: FDA-Public Use
  Company Number: 9206

PATIENT
  Age: 56 Year
  Sex: Female

DRUGS (4)
  1. FLUOROURACIL [Suspect]
     Indication: BREAST CANCER
     Dosage: 987.5 MG WEEKLY
     Route: 042
  2. METHOTREXATE [Suspect]
     Indication: BREAST CANCER
  3. CYCLOPHOSPHAMIDE [Suspect]
     Indication: BREAST CANCER
  4. TAMOXIFEN CITRATE [Concomitant]

REACTIONS (8)
  - BLUE TOE SYNDROME [None]
  - CYANOSIS [None]
  - PAIN IN EXTREMITY [None]
  - PERIPHERAL COLDNESS [None]
  - PERIPHERAL ISCHAEMIA [None]
  - PULSE ABSENT [None]
  - TOE AMPUTATION [None]
  - VASCULAR OCCLUSION [None]
